FAERS Safety Report 10455511 (Version 4)
Quarter: 2014Q4

REPORT INFORMATION
  Report Type: Spontaneous
  Country: US (occurrence: None)
  Receive Date: 20140912
  Receipt Date: 20141113
  Transmission Date: 20150528
  Serious: Yes (Death, Other)
  Sender: FDA-Public Use
  Company Number: ADR-2014-01651

PATIENT
  Age: 76 Year
  Sex: Male

DRUGS (1)
  1. COMPOUNDED BACLOFEN INTRATHECAL 2,000 MCG/ML [Suspect]
     Active Substance: BACLOFEN
     Indication: MUSCLE SPASTICITY

REACTIONS (1)
  - Lung neoplasm malignant [None]

NARRATIVE: CASE EVENT DATE: 20140830
